FAERS Safety Report 7009326-9 (Version None)
Quarter: 2010Q3

REPORT INFORMATION
  Report Type: 
  Country: None (occurrence: None)
  Receive Date: 20100921
  Receipt Date: 20100915
  Transmission Date: 20110219
  Serious: Yes (Death)
  Sender: FDA-Public Use
  Company Number: 2010US003786

PATIENT
  Age: 53 Year
  Sex: Female

DRUGS (4)
  1. PROGRAF [Suspect]
     Indication: LIVER TRANSPLANT
     Dosage: 1 DF, UID/QD, ORAL
     Route: 048
  2. INTERFERON [Concomitant]
  3. PEGASYS [Concomitant]
  4. NEXIUM IV [Concomitant]

REACTIONS (1)
  - DEATH [None]
